FAERS Safety Report 18202960 (Version 3)
Quarter: 2020Q4

REPORT INFORMATION
  Report Type: Report from Study
  Country: None (occurrence: US)
  Receive Date: 20200827
  Receipt Date: 20201030
  Transmission Date: 20210113
  Serious: Yes (Other)
  Sender: FDA-Public Use
  Company Number: US-INSMED, INC.-US-INS-19-03930

PATIENT
  Age: 67 Year
  Sex: Female

DRUGS (2)
  1. ARIKAYCE [Suspect]
     Active Substance: AMIKACIN
     Indication: MYCOBACTERIUM AVIUM COMPLEX INFECTION
     Route: 055
     Dates: start: 20191211
  2. ARIKAYCE [Suspect]
     Active Substance: AMIKACIN
     Route: 055
     Dates: start: 2020, end: 2020

REACTIONS (17)
  - Anosmia [Not Recovered/Not Resolved]
  - Neuropathy peripheral [Unknown]
  - Dysgeusia [Unknown]
  - Dyspnoea [Unknown]
  - Macular degeneration [Unknown]
  - Ageusia [Unknown]
  - Headache [Unknown]
  - Cough [Not Recovered/Not Resolved]
  - Dysphonia [Unknown]
  - Device issue [Unknown]
  - Off label use [Unknown]
  - Fine motor skill dysfunction [Unknown]
  - Wheezing [Unknown]
  - Cardiac dysfunction [Unknown]
  - Diarrhoea [Unknown]
  - Flatulence [Unknown]
  - Drug dose omission by device [Unknown]

NARRATIVE: CASE EVENT DATE: 201912
